FAERS Safety Report 15526093 (Version 1)
Quarter: 2018Q4

REPORT INFORMATION
  Report Type: Spontaneous
  Country: ES (occurrence: ES)
  Receive Date: 20181018
  Receipt Date: 20181018
  Transmission Date: 20190205
  Serious: Yes (Other)
  Sender: FDA-Public Use
  Company Number: ES-ABBVIE-18K-144-2521168-00

PATIENT
  Age: 36 Year
  Sex: Male

DRUGS (2)
  1. ADALIMUMAB [Suspect]
     Active Substance: ADALIMUMAB
     Indication: PRODUCT USED FOR UNKNOWN INDICATION
     Route: 058
  2. INFLIXIMAB RECOMBINANT [Suspect]
     Active Substance: INFLIXIMAB
     Indication: CROHN^S DISEASE
     Dosage: DOSAGE FORM: LYOPHILIZED POWDER
     Route: 042

REACTIONS (5)
  - Haematochezia [Unknown]
  - Anal incontinence [Unknown]
  - Psoriasis [Unknown]
  - Decreased immune responsiveness [Unknown]
  - Abdominal pain [Unknown]
